FAERS Safety Report 16431000 (Version 1)
Quarter: 2019Q2

REPORT INFORMATION
  Report Type: Spontaneous
  Country: MX (occurrence: MX)
  Receive Date: 20190614
  Receipt Date: 20190614
  Transmission Date: 20190711
  Serious: Yes (Other)
  Sender: FDA-Public Use
  Company Number: MX-ASTRAZENECA-2019SE86786

PATIENT
  Age: 4049 Day
  Sex: Male
  Weight: 42 kg

DRUGS (3)
  1. VANNAIR [Suspect]
     Active Substance: BUDESONIDE\FORMOTEROL FUMARATE DIHYDRATE
     Indication: ASTHMA
     Dosage: 80/4.5 (UNKNOWN UNIT) 120 DOSES, 1 INHALATION EVERY 12 HOURS
     Route: 055
     Dates: start: 20190531
  2. VANNAIR [Suspect]
     Active Substance: BUDESONIDE\FORMOTEROL FUMARATE DIHYDRATE
     Indication: ASTHMA
     Dosage: 80/4.5 (UNKNOWN UNIT) 120 DOSES, 1 INHALATION EVERY 12 HOURS
     Route: 055
     Dates: start: 2015
  3. MONTELUKAST [Concomitant]
     Active Substance: MONTELUKAST SODIUM
     Indication: ASTHMA
     Route: 048
     Dates: start: 2015

REACTIONS (2)
  - Product dose omission [Unknown]
  - Asthmatic crisis [Recovering/Resolving]

NARRATIVE: CASE EVENT DATE: 20190531
